FAERS Safety Report 5443303-4 (Version None)
Quarter: 2007Q3

REPORT INFORMATION
  Report Type: 
  Country: None (occurrence: None)
  Receive Date: 20070831
  Receipt Date: 20070831
  Transmission Date: 20080115
  Serious: Yes (Life-Threatening, Hospitalization)
  Sender: FDA-Public Use
  Company Number: None

PATIENT
  Age: 45 Year
  Sex: Female
  Weight: 88.1 kg

DRUGS (2)
  1. LEVAQUIN [Suspect]
     Indication: PNEUMONIA
     Dosage: 500MG Q24HRS IV
     Route: 042
     Dates: start: 20070826
  2. LEVAQUIN [Suspect]

REACTIONS (6)
  - ELECTROCARDIOGRAM QT PROLONGED [None]
  - FALL [None]
  - LOSS OF CONSCIOUSNESS [None]
  - PUPIL FIXED [None]
  - RESPIRATION ABNORMAL [None]
  - VENTRICULAR FIBRILLATION [None]
